FAERS Safety Report 10551313 (Version 1)
Quarter: 2014Q4

REPORT INFORMATION
  Report Type: Spontaneous
  Country: US (occurrence: None)
  Receive Date: 20141028
  Receipt Date: 20141028
  Transmission Date: 20150529
  Serious: Yes (Other)
  Sender: FDA-Public Use
  Company Number: None

PATIENT
  Age: 45 Year
  Sex: Female
  Weight: 62.6 kg

DRUGS (4)
  1. DIVALPROEX SODIUM 500MG [Suspect]
     Active Substance: DIVALPROEX SODIUM
     Indication: BIPOLAR DISORDER
     Dosage: 60 TWICE DAILY 30
     Dates: start: 20140819, end: 20140904
  2. DIVALPROEX [Concomitant]
     Active Substance: DIVALPROEX SODIUM
  3. TRAZODONE [Concomitant]
     Active Substance: TRAZODONE HYDROCHLORIDE
  4. DEPAKOTE [Suspect]
     Active Substance: DIVALPROEX SODIUM
     Dosage: 60 TWICE DAILY 30

REACTIONS (11)
  - Sensory loss [None]
  - Facial bones fracture [None]
  - Musculoskeletal disorder [None]
  - Fall [None]
  - Laceration [None]
  - Loss of control of legs [None]
  - Face injury [None]
  - Muscle strain [None]
  - Head injury [None]
  - Dizziness [None]
  - Tooth discolouration [None]

NARRATIVE: CASE EVENT DATE: 20140904
